FAERS Safety Report 16252063 (Version 1)
Quarter: 2019Q2

REPORT INFORMATION
  Report Type: Spontaneous
  Country: US (occurrence: US)
  Receive Date: 20190429
  Receipt Date: 20190429
  Transmission Date: 20190711
  Serious: Yes (Other)
  Sender: FDA-Public Use
  Company Number: US-NOVOPROD-659072

PATIENT
  Age: 71 Year
  Sex: Male

DRUGS (2)
  1. OZEMPIC [Concomitant]
     Active Substance: SEMAGLUTIDE
     Indication: TYPE 2 DIABETES MELLITUS
     Dosage: UNK
     Route: 058
     Dates: start: 201812, end: 201901
  2. VICTOZA [Suspect]
     Active Substance: LIRAGLUTIDE
     Indication: TYPE 2 DIABETES MELLITUS
     Dosage: 1.8 MG, QD
     Route: 058
     Dates: start: 2016, end: 201812

REACTIONS (1)
  - Lymphadenopathy [Recovered/Resolved]

NARRATIVE: CASE EVENT DATE: 201812
